FAERS Safety Report 17880081 (Version 2)
Quarter: 2020Q2

REPORT INFORMATION
  Report Type: Report from Study
  Country: DE (occurrence: DE)
  Receive Date: 20200610
  Receipt Date: 20200611
  Transmission Date: 20200714
  Serious: Yes (Hospitalization)
  Sender: FDA-Public Use
  Company Number: DE-ROCHE-2614897

PATIENT
  Age: 44 Year
  Sex: Female
  Weight: 67 kg

DRUGS (4)
  1. PREGABALIN. [Concomitant]
     Active Substance: PREGABALIN
     Indication: TUMOUR PAIN
     Route: 065
     Dates: start: 20200110
  2. BEVACIZUMAB. [Suspect]
     Active Substance: BEVACIZUMAB
     Indication: OVARIAN CANCER RECURRENT
     Dosage: DATE OF LAST DOSE 15 MG/KG OF BEVACIZUMAB PRIOR TO SAE: 18/MAY/2020
     Route: 042
     Dates: start: 20191216
  3. BLINDED ATEZOLIZUMAB [Suspect]
     Active Substance: ATEZOLIZUMAB
     Indication: OVARIAN CANCER RECURRENT
     Dosage: ON 18/MAY/2020, SHE TRECEIVED LAST DOSE  OOF ATEZOLIZUMAB PRIOR TO SAE.
     Route: 042
     Dates: start: 20191216
  4. HYDROPHOR [Concomitant]
     Active Substance: PETROLATUM
     Indication: TUMOUR PAIN
     Route: 048
     Dates: start: 20200110

REACTIONS (1)
  - Cystitis [Not Recovered/Not Resolved]

NARRATIVE: CASE EVENT DATE: 20200602
